FAERS Safety Report 9517178 (Version 1)
Quarter: 2013Q3

REPORT INFORMATION
  Report Type: Spontaneous
  Country: US (occurrence: US)
  Receive Date: 20130911
  Receipt Date: 20130911
  Transmission Date: 20140515
  Serious: No
  Sender: FDA-Public Use
  Company Number: US-PFIZER INC-2013261585

PATIENT
  Age: 43 Year
  Sex: Male
  Weight: 72.6 kg

DRUGS (1)
  1. EFFEXOR [Suspect]
     Indication: ATTENTION DEFICIT/HYPERACTIVITY DISORDER
     Dosage: 75 MG, 1X/DAY
     Route: 048
     Dates: start: 20130904, end: 20130906

REACTIONS (2)
  - Tinnitus [Not Recovered/Not Resolved]
  - Off label use [Unknown]
